FAERS Safety Report 8476010-4 (Version None)
Quarter: 2012Q2

REPORT INFORMATION
  Report Type: 
  Country: None (occurrence: None)
  Receive Date: 20120622
  Receipt Date: 20120611
  Transmission Date: 20120825
  Serious: Yes (Other)
  Sender: FDA-Public Use
  Company Number: FK201201632

PATIENT
  Age: 58 Year
  Sex: Female

DRUGS (3)
  1. AZATHIOPRINE [Suspect]
     Indication: SYSTEMIC LUPUS ERYTHEMATOSUS
     Dosage: 50 MG, PER DAY,
     Dates: start: 20100101, end: 20100901
  2. MYCOPHENOLATE MOFETIL [Suspect]
     Indication: SYSTEMIC LUPUS ERYTHEMATOSUS
     Dosage: 720 MG, BID
  3. METHYLPREDNISOLONE [Suspect]
     Indication: SYSTEMIC LUPUS ERYTHEMATOSUS
     Dosage: 4 MG, PER DAY, 60 MG, PER DAY
     Dates: start: 20100101

REACTIONS (12)
  - PERITONITIS [None]
  - POLYARTHRITIS [None]
  - RETINAL VASCULITIS [None]
  - IMPAIRED HEALING [None]
  - COLITIS ULCERATIVE [None]
  - POST PROCEDURAL COMPLICATION [None]
  - RASH [None]
  - CYTOMEGALOVIRUS INFECTION [None]
  - LARGE INTESTINE PERFORATION [None]
  - RAYNAUD'S PHENOMENON [None]
  - LEUKOPENIA [None]
  - ANTINUCLEAR ANTIBODY POSITIVE [None]
